FAERS Safety Report 9472254 (Version 1)
Quarter: 2013Q3

REPORT INFORMATION
  Report Type: Spontaneous
  Country: BR (occurrence: BR)
  Receive Date: 20130823
  Receipt Date: 20130823
  Transmission Date: 20140515
  Serious: Yes (Hospitalization)
  Sender: FDA-Public Use
  Company Number: BR-ASTRAZENECA-2013SE63890

PATIENT
  Age: 77 Year
  Sex: Male
  Weight: 79.5 kg

DRUGS (3)
  1. ROSUVASTATIN [Suspect]
     Indication: DIABETES MELLITUS
     Route: 048
  2. ASA [Concomitant]
  3. GALVUS MET [Concomitant]
     Indication: DIABETES MELLITUS

REACTIONS (2)
  - Coronary artery occlusion [Recovered/Resolved]
  - Off label use [Not Recovered/Not Resolved]
